FAERS Safety Report 5877273-1 (Version None)
Quarter: 2008Q3

REPORT INFORMATION
  Report Type: 
  Country: None (occurrence: None)
  Receive Date: 20080908
  Receipt Date: 20080826
  Transmission Date: 20090109
  Serious: Yes (Death)
  Sender: FDA-Public Use
  Company Number: 004171

PATIENT
  Age: 2 Year
  Sex: Female

DRUGS (7)
  1. BUSULFEX [Suspect]
     Indication: STEM CELL TRANSPLANT
     Dosage: 9.6 ML, UNK, INTRAVENOUS
     Route: 042
     Dates: start: 20070227, end: 20070302
  2. CYCLOPHOSPHAMIDE [Concomitant]
  3. VALPROATE SODIUM [Concomitant]
  4. LENOGRASTIM (LENOGRASTIM) [Concomitant]
  5. NARTOGRASTIM (NARTOGRASTIM) [Concomitant]
  6. METHOTREXATE [Concomitant]
  7. NARTOGRASTIM (NARTOGRASTIM) [Concomitant]

REACTIONS (10)
  - ACUTE GRAFT VERSUS HOST DISEASE [None]
  - ACUTE MYELOID LEUKAEMIA RECURRENT [None]
  - ANOREXIA [None]
  - BONE MARROW TRANSPLANT [None]
  - HERPES VIRUS INFECTION [None]
  - INFECTION [None]
  - LIVER DISORDER [None]
  - MALAISE [None]
  - NAUSEA [None]
  - VOMITING [None]
